FAERS Safety Report 22122017 (Version 1)
Quarter: 2023Q1

REPORT INFORMATION
  Report Type: Spontaneous
  Country: BR (occurrence: BR)
  Receive Date: 20230321
  Receipt Date: 20230321
  Transmission Date: 20230417
  Serious: Yes (Other)
  Sender: FDA-Public Use
  Company Number: BR-AMGEN-BRASP2023045194

PATIENT
  Sex: Female

DRUGS (1)
  1. PROLIA [Suspect]
     Active Substance: DENOSUMAB
     Indication: Osteoporosis
     Dosage: 60 MILLIGRAM, Q6MO
     Route: 058

REACTIONS (10)
  - Gastric neoplasm [Unknown]
  - Respiratory tract infection [Unknown]
  - Drug ineffective [Unknown]
  - Mouth swelling [Unknown]
  - Hypoaesthesia oral [Unknown]
  - Confusional state [Unknown]
  - Breast disorder [Unknown]
  - Swollen tongue [Unknown]
  - Pain [Unknown]
  - Muscle spasms [Unknown]
